FAERS Safety Report 9175017 (Version 2)
Quarter: 2013Q2

REPORT INFORMATION
  Report Type: Report from Study
  Country: JP (occurrence: JP)
  Receive Date: 20130320
  Receipt Date: 20130403
  Transmission Date: 20140414
  Serious: Yes (Other)
  Sender: FDA-Public Use
  Company Number: JP-GLAXOSMITHKLINE-B0875188A

PATIENT
  Age: 74 Year
  Sex: Female
  Weight: 59 kg

DRUGS (6)
  1. TYKERB [Suspect]
     Indication: BREAST CANCER
     Route: 048
     Dates: start: 20110930
  2. XELODA [Suspect]
     Indication: PRODUCT USED FOR UNKNOWN INDICATION
     Route: 048
     Dates: start: 20110930, end: 20111218
  3. FUROSEMIDE [Concomitant]
     Indication: CARDIAC DISORDER
     Route: 048
     Dates: start: 20110610, end: 20111228
  4. URSO [Concomitant]
     Indication: HEPATIC FUNCTION ABNORMAL
     Route: 048
     Dates: start: 20110610, end: 20120212
  5. METHYCOBAL [Concomitant]
     Indication: NEUROPATHY PERIPHERAL
     Route: 048
     Dates: start: 20110711, end: 20111113
  6. LAC-B [Concomitant]
     Indication: PROPHYLAXIS
     Route: 048
     Dates: start: 20110930

REACTIONS (2)
  - Hepatic function abnormal [Not Recovered/Not Resolved]
  - Paronychia [Recovered/Resolved]
